FAERS Safety Report 10913426 (Version 1)
Quarter: 2015Q1

REPORT INFORMATION
  Report Type: Spontaneous
  Country: JP (occurrence: JP)
  Receive Date: 20150313
  Receipt Date: 20150313
  Transmission Date: 20150721
  Serious: Yes (Death, Other)
  Sender: FDA-Public Use
  Company Number: JP-ASTELLAS-2015US008096

PATIENT
  Age: 55 Year
  Sex: Female

DRUGS (1)
  1. AMBISOME [Suspect]
     Active Substance: AMPHOTERICIN B
     Indication: ASPERGILLUS INFECTION
     Dosage: UNK, UNKNOWN FREQ.
     Route: 065
     Dates: start: 20150226

REACTIONS (3)
  - Bradycardia [Unknown]
  - Haematemesis [Fatal]
  - Choking [Unknown]

NARRATIVE: CASE EVENT DATE: 20150227
